FAERS Safety Report 5587468-2 (Version None)
Quarter: 2007Q4

REPORT INFORMATION
  Report Type: 
  Country: None (occurrence: None)
  Receive Date: 20071207
  Receipt Date: 20070502
  Transmission Date: 20080405
  Serious: Yes (Other)
  Sender: FDA-Public Use
  Company Number: 2007035707

PATIENT
  Age: 57 Year
  Sex: Male
  Weight: 81.6475 kg

DRUGS (2)
  1. VIAGRA [Suspect]
     Indication: ERECTILE DYSFUNCTION
     Dosage: (50 MG,AS NECESSARY) 2.5 YEARS AGO
  2. ACETYLSALICYLIC ACID SRT [Concomitant]

REACTIONS (2)
  - BLOOD PRESSURE ABNORMAL [None]
  - SENSORY DISTURBANCE [None]
